FAERS Safety Report 15427234 (Version 13)
Quarter: 2019Q1

REPORT INFORMATION
  Report Type: Report from Study
  Country: US (occurrence: US)
  Receive Date: 20180925
  Receipt Date: 20190125
  Transmission Date: 20190417
  Serious: Yes (Hospitalization, Other)
  Sender: FDA-Public Use
  Company Number: PHHY2018US101392

PATIENT
  Age: 4 Year
  Sex: Female
  Weight: 16.5 kg

DRUGS (22)
  1. NAPROXEN. [Concomitant]
     Active Substance: NAPROXEN
     Indication: JUVENILE IDIOPATHIC ARTHRITIS
     Dosage: 125 MG, UNK
     Route: 065
     Dates: start: 201709, end: 20171005
  2. NAPROXEN. [Concomitant]
     Active Substance: NAPROXEN
     Dosage: 150 MG, UNK
     Route: 065
     Dates: start: 20171023, end: 20180820
  3. NEORAL [Suspect]
     Active Substance: CYCLOSPORINE
     Dosage: UNK
     Route: 048
     Dates: start: 20180820
  4. NEORAL [Suspect]
     Active Substance: CYCLOSPORINE
     Dosage: UNK
     Route: 048
     Dates: start: 20181105
  5. ANAKINRA [Suspect]
     Active Substance: ANAKINRA
     Dosage: UNK
     Route: 065
     Dates: start: 20180820
  6. FAMOTIDINE. [Concomitant]
     Active Substance: FAMOTIDINE
     Indication: JUVENILE IDIOPATHIC ARTHRITIS
     Dosage: 7 MG, UNK
     Route: 065
     Dates: start: 20171006
  7. INDOMETHACIN. [Concomitant]
     Active Substance: INDOMETHACIN
     Indication: JUVENILE IDIOPATHIC ARTHRITIS
     Dosage: 15 MG, UNK
     Route: 065
     Dates: start: 20171005, end: 20171010
  8. PREDNISOLONE. [Concomitant]
     Active Substance: PREDNISOLONE
     Indication: STILL^S DISEASE
     Dosage: 5.5 ML (16.5 MG), BID
     Route: 065
     Dates: start: 2018
  9. NEORAL [Suspect]
     Active Substance: CYCLOSPORINE
     Dosage: 50 MG, UNK
     Route: 065
     Dates: start: 20180202
  10. ANAKINRA [Suspect]
     Active Substance: ANAKINRA
     Indication: JUVENILE IDIOPATHIC ARTHRITIS
     Dosage: 50 MG, UNK
     Route: 065
     Dates: start: 20171031, end: 20171113
  11. ANAKINRA [Suspect]
     Active Substance: ANAKINRA
     Dosage: 100 MG, UNK
     Route: 065
     Dates: start: 20171113, end: 20171228
  12. METHOTREXATE. [Suspect]
     Active Substance: METHOTREXATE
     Dosage: 15 MG, UNK
     Route: 065
     Dates: start: 20181108
  13. ANAKINRA [Suspect]
     Active Substance: ANAKINRA
     Dosage: 200 MG, UNK
     Route: 065
     Dates: start: 20180201
  14. METHOTREXATE. [Suspect]
     Active Substance: METHOTREXATE
     Indication: PRODUCT USED FOR UNKNOWN INDICATION
     Dosage: 10 MG, UNK
     Route: 065
     Dates: start: 20180830, end: 20181107
  15. IBUPROFEN. [Concomitant]
     Active Substance: IBUPROFEN
     Indication: JUVENILE IDIOPATHIC ARTHRITIS
     Dosage: 150 MG, UNK
     Route: 065
     Dates: start: 201709, end: 20171005
  16. ACETAMINOPHEN. [Concomitant]
     Active Substance: ACETAMINOPHEN
     Indication: JUVENILE IDIOPATHIC ARTHRITIS
     Dosage: 144 MG, UNK
     Route: 065
     Dates: start: 20171004, end: 20180824
  17. TOCILIZUMAB. [Concomitant]
     Active Substance: TOCILIZUMAB
     Indication: JUVENILE IDIOPATHIC ARTHRITIS
     Dosage: 200 MG, UNK
     Route: 065
     Dates: start: 20171228, end: 20180201
  18. ANAKINRA [Suspect]
     Active Substance: ANAKINRA
     Dosage: UNK
     Route: 065
     Dates: start: 201811
  19. METHOTREXATE. [Suspect]
     Active Substance: METHOTREXATE
     Dosage: UNK
     Route: 065
     Dates: start: 20181021
  20. HYDROXYZINE [Concomitant]
     Active Substance: HYDROXYZINE HYDROCHLORIDE
     Indication: JUVENILE IDIOPATHIC ARTHRITIS
     Dosage: 10 MG, UNK
     Route: 065
     Dates: start: 201709, end: 20171010
  21. NEORAL [Suspect]
     Active Substance: CYCLOSPORINE
     Indication: JUVENILE IDIOPATHIC ARTHRITIS
     Dosage: 25 MG, UNK
     Route: 065
     Dates: start: 20180118, end: 20180202
  22. NO TREATMENT RECEIVED [Suspect]
     Active Substance: UNSPECIFIED INGREDIENT
     Indication: STILL^S DISEASE
     Route: 065

REACTIONS (5)
  - Still^s disease [Recovered/Resolved]
  - Joint swelling [Recovering/Resolving]
  - Pyrexia [Recovered/Resolved]
  - Still^s disease [Recovered/Resolved]
  - Abdominal pain lower [Recovered/Resolved]

NARRATIVE: CASE EVENT DATE: 20180820
